FAERS Safety Report 7493673-0 (Version None)
Quarter: 2011Q2

REPORT INFORMATION
  Report Type: 
  Country: None (occurrence: None)
  Receive Date: 20110519
  Receipt Date: 20110519
  Transmission Date: 20111010
  Serious: Yes (Life-Threatening, Hospitalization)
  Sender: FDA-Public Use
  Company Number: None

PATIENT
  Age: 66 Year
  Sex: Male
  Weight: 68.08 kg

DRUGS (1)
  1. BEXAROTENE [Suspect]
     Indication: ACUTE MYELOID LEUKAEMIA
     Dosage: 200 MG/M2 P.O
     Route: 048
     Dates: start: 20110323

REACTIONS (4)
  - RESPIRATORY FAILURE [None]
  - VOMITING [None]
  - NAUSEA [None]
  - FALL [None]
